FAERS Safety Report 8837355 (Version 2)
Quarter: 2013Q2

REPORT INFORMATION
  Report Type: Spontaneous
  Country: JP (occurrence: JP)
  Receive Date: 20121012
  Receipt Date: 20130404
  Transmission Date: 20140414
  Serious: Yes (Hospitalization)
  Sender: FDA-Public Use
  Company Number: JP-BAYER-2012-103096

PATIENT
  Age: 88 Year
  Sex: Female
  Weight: 42 kg

DRUGS (12)
  1. NEXAVAR [Suspect]
     Indication: HEPATOCELLULAR CARCINOMA
     Dosage: 400 MG, QD
     Route: 048
     Dates: start: 20120925, end: 20120927
  2. OMEPRAZOLE [Concomitant]
     Indication: ABDOMINAL DISCOMFORT
     Dosage: DAILY DOSE 10 MG
     Route: 048
  3. BLOPRESS [Concomitant]
     Indication: HYPERTENSION
     Dosage: DAILY DOSE 8 MG
     Route: 048
  4. COLONEL [Concomitant]
     Indication: CONSTIPATION
     Dosage: DAILY DOSE 1.8 G
     Route: 048
  5. URSAMIC [Concomitant]
     Indication: PROPHYLAXIS
     Dosage: DAILY DOSE 300 MG
     Route: 048
  6. CELECOXIB [Concomitant]
     Indication: OSTEOARTHRITIS
     Dosage: DAILY DOSE 200 MG
     Route: 048
  7. BONOTEO [Concomitant]
     Indication: OSTEOPOROSIS
     Dosage: DAILY DOSE 1 MG
     Route: 048
  8. MAGMITT [Concomitant]
     Indication: LAXATIVE SUPPORTIVE CARE
     Dosage: DAILY DOSE 990 MG
     Route: 048
  9. ADALAT CR [Concomitant]
     Indication: HYPERTENSION
     Dosage: DAILY DOSE 40 MG
     Route: 048
     Dates: start: 20120926
  10. UREPEARL [Concomitant]
     Indication: PROPHYLAXIS
     Dosage: UNK
     Route: 061
     Dates: start: 20120919
  11. URITOS [Concomitant]
     Indication: HYPERTONIC BLADDER
     Dosage: DAILY DOSE .1 MG
     Route: 048
  12. LACB-R [Concomitant]
     Indication: DIARRHOEA
     Dosage: DAILY DOSE 3 G
     Route: 048
     Dates: start: 20120929, end: 20121001

REACTIONS (3)
  - Hepatic encephalopathy [Recovered/Resolved]
  - Delirium [Recovered/Resolved]
  - Ammonia increased [Recovered/Resolved]
